FAERS Safety Report 8283690-5 (Version None)
Quarter: 2012Q2

REPORT INFORMATION
  Report Type: 
  Country: None (occurrence: None)
  Receive Date: 20120413
  Receipt Date: 20120409
  Transmission Date: 20120825
  Serious: Yes (Other)
  Sender: FDA-Public Use
  Company Number: US-PFIZER INC-2012075174

PATIENT
  Sex: Male

DRUGS (2)
  1. LISINOPRIL [Concomitant]
     Indication: HYPERTENSION
     Dosage: UNK
     Dates: start: 20100901
  2. LATANOPROST [Suspect]
     Indication: GLAUCOMA
     Dosage: UNK, 1X/DAY(ONE DROP IN BOTH THE EYES ONCE A DAY)
     Route: 047
     Dates: start: 20120220

REACTIONS (2)
  - PARAESTHESIA [None]
  - HYPOAESTHESIA [None]
